FAERS Safety Report 8072346-X (Version None)
Quarter: 2012Q1

REPORT INFORMATION
  Report Type: 
  Country: None (occurrence: None)
  Receive Date: 20120126
  Receipt Date: 20120112
  Transmission Date: 20120608
  Serious: Yes (Hospitalization)
  Sender: FDA-Public Use
  Company Number: ZA-AMGEN-ZAFCT2011052662

PATIENT
  Age: 87 Year
  Sex: Male

DRUGS (11)
  1. SULFASALAZINE [Concomitant]
     Indication: ARTHRITIS
     Dosage: 500 MG, UNK
     Route: 048
     Dates: start: 20110124
  2. COZAAR [Concomitant]
     Indication: HYPERTENSION
     Dosage: 50 MG, UNK
     Route: 048
     Dates: start: 20100601
  3. PULMICORT-100 [Concomitant]
     Indication: EMPHYSEMA
     Dosage: 1 MUG, UNK
     Route: 055
     Dates: start: 19990101
  4. INDAPAMIDE [Concomitant]
     Indication: HYPERTENSION
     Dosage: 1.5 MG, UNK
     Route: 048
     Dates: start: 20100621
  5. VITAMIN D [Concomitant]
     Dosage: UNK
     Route: 048
     Dates: start: 20070606
  6. XALATAN [Concomitant]
     Indication: GLAUCOMA
     Dosage: UNK UNK, QD
     Route: 048
     Dates: start: 19970101
  7. OXIS [Concomitant]
     Indication: EMPHYSEMA
     Dosage: 1 MUG, UNK
     Route: 055
     Dates: start: 19990101
  8. DENOSUMAB [Suspect]
     Indication: PROSTATE CANCER
     Dosage: 2 ML, Q4WK
     Route: 058
     Dates: start: 20110207
  9. CALCIUM [Concomitant]
     Dosage: UNK UNK, QD
     Route: 048
     Dates: start: 20070606
  10. ARCOXIA [Concomitant]
     Indication: ARTHRITIS
     Dosage: 90 MG, UNK
     Route: 048
     Dates: start: 20101005
  11. CASODEX [Concomitant]
     Dosage: 50 MG, QD
     Route: 048
     Dates: start: 20100215, end: 20110801

REACTIONS (6)
  - MEDIASTINOSCOPY [None]
  - BRONCHOSCOPY [None]
  - LUMBAR SPINAL STENOSIS [None]
  - PULMONARY EMBOLISM [None]
  - URINARY INCONTINENCE [None]
  - BRONCHOPNEUMONIA [None]
